FAERS Safety Report 20001290 (Version 1)
Quarter: 2021Q4

REPORT INFORMATION
  Report Type: Spontaneous
  Country: US (occurrence: US)
  Receive Date: 20211026
  Receipt Date: 20211026
  Transmission Date: 20220303
  Serious: Yes (Other)
  Sender: FDA-Public Use
  Company Number: None

PATIENT
  Age: 19 Year
  Sex: Male

DRUGS (1)
  1. METHADONE [Suspect]
     Active Substance: METHADONE HYDROCHLORIDE
     Route: 048

REACTIONS (5)
  - Dizziness [None]
  - Malaise [None]
  - Fatigue [None]
  - Wrong product administered [None]
  - Product dispensing error [None]

NARRATIVE: CASE EVENT DATE: 20211006
